FAERS Safety Report 18551048 (Version 1)
Quarter: 2020Q4

REPORT INFORMATION
  Report Type: Spontaneous
  Country: US (occurrence: US)
  Receive Date: 20201126
  Receipt Date: 20201126
  Transmission Date: 20210114
  Serious: Yes (Life-Threatening, Other)
  Sender: FDA-Public Use
  Company Number: US-PURDUE-USA-2020-0177524

PATIENT
  Sex: Male

DRUGS (3)
  1. OXYCODONE/ ACETAMINOPHEN TABLETS [Suspect]
     Active Substance: ACETAMINOPHEN\OXYCODONE HYDROCHLORIDE
     Indication: PRODUCT USED FOR UNKNOWN INDICATION
     Route: 048
  2. HYDROCODONE BITARTRATE/ACETAMINOPHEN [Suspect]
     Active Substance: ACETAMINOPHEN\HYDROCODONE BITARTRATE
     Indication: PRODUCT USED FOR UNKNOWN INDICATION
     Route: 048
  3. OXYCODONE HCL CR TABLETS (SIMILAR TO NDA 22-272) [Suspect]
     Active Substance: OXYCODONE HYDROCHLORIDE
     Indication: PRODUCT USED FOR UNKNOWN INDICATION
     Route: 048

REACTIONS (28)
  - Depression [Unknown]
  - Drug dependence [Unknown]
  - Drug abuse [Unknown]
  - Anhedonia [Unknown]
  - Pain [Unknown]
  - Chest pain [Unknown]
  - Anxiety [Unknown]
  - Hallucination [Unknown]
  - Cerebral disorder [Unknown]
  - Cardiac disorder [Unknown]
  - Unevaluable event [Unknown]
  - Confusional state [Unknown]
  - Cardiac arrest [Unknown]
  - Anger [Unknown]
  - Behaviour disorder [Unknown]
  - Renal disorder [Unknown]
  - Immune system disorder [Unknown]
  - Paranoia [Unknown]
  - Irritability [Unknown]
  - Blood pressure decreased [Unknown]
  - Diarrhoea [Unknown]
  - Nausea [Unknown]
  - Decreased appetite [Unknown]
  - Mood swings [Unknown]
  - Liver disorder [Unknown]
  - Overdose [Unknown]
  - Suicidal ideation [Unknown]
  - Fatigue [Unknown]
